FAERS Safety Report 17047011 (Version 1)
Quarter: 2019Q4

REPORT INFORMATION
  Report Type: Spontaneous
  Country: US (occurrence: US)
  Receive Date: 20191119
  Receipt Date: 20191119
  Transmission Date: 20200122
  Serious: No
  Sender: FDA-Public Use
  Company Number: US-ACCORD-134077

PATIENT
  Sex: Female

DRUGS (2)
  1. AMLODIPINE [Concomitant]
     Active Substance: AMLODIPINE BESYLATE
  2. HYDROCHLOROTHIAZIDE. [Suspect]
     Active Substance: HYDROCHLOROTHIAZIDE
     Indication: BLOOD PRESSURE MEASUREMENT
     Dosage: STRENGTH: 25 MG AND 12.5 MG?DOSE: STARTED FROM 25 MG THEN REDUCED TO 12.5 MG
     Dates: start: 20190607

REACTIONS (8)
  - Blood pressure increased [Recovered/Resolved]
  - Head discomfort [Recovered/Resolved]
  - Tongue discomfort [Recovered/Resolved]
  - Heart rate increased [Recovered/Resolved]
  - Paraesthesia oral [Recovered/Resolved]
  - Nausea [Recovered/Resolved]
  - Wrong technique in product usage process [Unknown]
  - Erythema [Recovered/Resolved]
